FAERS Safety Report 14901217 (Version 1)
Quarter: 2018Q2

REPORT INFORMATION
  Report Type: Spontaneous
  Country: FR (occurrence: FR)
  Receive Date: 20180516
  Receipt Date: 20180516
  Transmission Date: 20180711
  Serious: Yes (Death)
  Sender: FDA-Public Use
  Company Number: FR-PFIZER INC-2018196102

PATIENT
  Age: 57 Year
  Sex: Male

DRUGS (12)
  1. OXCARBAZEPINE. [Suspect]
     Active Substance: OXCARBAZEPINE
     Indication: EPILEPSY
     Dosage: 1200 MG, 1X/DAY
     Route: 048
     Dates: start: 20170119, end: 20180227
  2. URBANYL [Suspect]
     Active Substance: CLOBAZAM
     Indication: EPILEPSY
     Dosage: 5 MG, 1X/DAY
     Route: 048
     Dates: start: 20180126, end: 20180131
  3. PARACETAMOL [Concomitant]
     Active Substance: ACETAMINOPHEN
     Indication: INFECTION
     Dosage: 1 G, AS NEEDED
     Route: 048
     Dates: start: 20180222, end: 20180304
  4. NALTREXONE [Suspect]
     Active Substance: NALTREXONE
     Dosage: 100 MG, 1X/DAY
     Route: 048
     Dates: start: 20171102, end: 20180227
  5. CLAMOXYL (AMOXICILLIN) [Concomitant]
     Active Substance: AMOXICILLIN
     Indication: RESPIRATORY TRACT INFECTION
     Dosage: 3 G, 1X/DAY
     Route: 048
     Dates: start: 20180223, end: 20180228
  6. ALPRAZOLAM. [Suspect]
     Active Substance: ALPRAZOLAM
     Indication: PSYCHOTIC DISORDER
     Dosage: 0.5 MG, 1X/DAY
     Route: 048
     Dates: start: 20171006, end: 20180227
  7. CLOPIXOL [Suspect]
     Active Substance: ZUCLOPENTHIXOL
     Indication: PSYCHOTIC DISORDER
     Dosage: 150 MG, 1X/DAY
     Route: 048
     Dates: start: 20180124, end: 20180227
  8. MACROGOL [Concomitant]
     Active Substance: POLYETHYLENE GLYCOLS
     Dosage: 2 DF, 1X/DAY/ON THE MORNING
     Route: 048
     Dates: start: 20161010, end: 20180301
  9. RISPERIDONE. [Suspect]
     Active Substance: RISPERIDONE
     Indication: PSYCHOTIC DISORDER
     Dosage: 8 MG, 1X/DAY
     Route: 048
     Dates: start: 20171129, end: 20180227
  10. DEPAKINE [Suspect]
     Active Substance: VALPROATE SODIUM
     Indication: EPILEPSY
     Dosage: 2000 MG, 1X/DAY
     Route: 048
     Dates: start: 20171208, end: 20180227
  11. PARKINANE LP [Suspect]
     Active Substance: TRIHEXYPHENIDYL HYDROCHLORIDE
     Indication: EXTRAPYRAMIDAL DISORDER
     Dosage: 15 MG, 1X/DAY
     Route: 048
     Dates: start: 20150720, end: 20180227
  12. NOZINAN [Suspect]
     Active Substance: LEVOMEPROMAZINE
     Indication: PSYCHOTIC DISORDER
     Dosage: 375 MG, 1X/DAY
     Route: 048
     Dates: start: 20150720, end: 20180227

REACTIONS (2)
  - Acute kidney injury [Fatal]
  - Pancreatitis acute [Fatal]

NARRATIVE: CASE EVENT DATE: 20180227
